FAERS Safety Report 15733058 (Version 1)
Quarter: 2018Q4

REPORT INFORMATION
  Report Type: Spontaneous
  Country: US (occurrence: US)
  Receive Date: 20181218
  Receipt Date: 20181218
  Transmission Date: 20190205
  Serious: No
  Sender: FDA-Public Use
  Company Number: US-DRREDDYS-USA/USA/17/0094824

PATIENT
  Age: 51 Year
  Sex: Female
  Weight: 61 kg

DRUGS (5)
  1. LORAZEPAM. [Concomitant]
     Active Substance: LORAZEPAM
     Indication: ANXIETY
     Route: 065
  2. NICOTINE. [Suspect]
     Active Substance: NICOTINE
     Indication: SMOKING CESSATION THERAPY
     Route: 062
     Dates: start: 20171206
  3. ATARAX [Concomitant]
     Active Substance: HYDROXYZINE HYDROCHLORIDE
     Indication: PRURITUS
     Route: 065
  4. ZIPRASIDONE. [Concomitant]
     Active Substance: ZIPRASIDONE
     Indication: BIPOLAR DISORDER
     Route: 065
  5. ADDERALL [Concomitant]
     Active Substance: AMPHETAMINE ASPARTATE\AMPHETAMINE SULFATE\DEXTROAMPHETAMINE SACCHARATE\DEXTROAMPHETAMINE SULFATE
     Indication: ATTENTION DEFICIT/HYPERACTIVITY DISORDER
     Route: 065

REACTIONS (4)
  - Product adhesion issue [Unknown]
  - Palpitations [Not Recovered/Not Resolved]
  - Hyperventilation [Not Recovered/Not Resolved]
  - Product dose omission [Unknown]

NARRATIVE: CASE EVENT DATE: 20171206
